FAERS Safety Report 10089961 (Version 1)
Quarter: 2014Q2

REPORT INFORMATION
  Report Type: Report from Study
  Country: US (occurrence: US)
  Receive Date: 20140421
  Receipt Date: 20140421
  Transmission Date: 20141212
  Serious: No
  Sender: FDA-Public Use
  Company Number: US-ABBVIE-14P-163-1202323-00

PATIENT
  Sex: Female

DRUGS (1)
  1. LUPRON (PEDIATRIC) [Suspect]
     Indication: PRECOCIOUS PUBERTY
     Dates: start: 201312

REACTIONS (2)
  - Injection site pain [Not Recovered/Not Resolved]
  - Gait disturbance [Not Recovered/Not Resolved]
